FAERS Safety Report 6567847-7 (Version None)
Quarter: 2010Q1

REPORT INFORMATION
  Report Type: 
  Country: None (occurrence: None)
  Receive Date: 20100203
  Receipt Date: 20100129
  Transmission Date: 20100710
  Serious: Yes (Life-Threatening, Hospitalization)
  Sender: FDA-Public Use
  Company Number: BE-CELGENEUS-013-C5013-09122364

PATIENT
  Sex: Male
  Weight: 76.4 kg

DRUGS (23)
  1. CC-5013 [Suspect]
     Indication: MULTIPLE MYELOMA
     Route: 048
     Dates: start: 20100114, end: 20100118
  2. CC-5013 [Suspect]
     Route: 048
     Dates: start: 20091217, end: 20091223
  3. CC-5013 [Suspect]
     Route: 048
     Dates: start: 20090723
  4. DEXAMETHASONE [Suspect]
     Indication: MULTIPLE MYELOMA
     Route: 048
     Dates: start: 20100114
  5. DEXAMETHASONE [Suspect]
     Route: 048
     Dates: start: 20091217, end: 20091225
  6. DEXAMETHASONE [Suspect]
     Route: 048
     Dates: start: 20090723
  7. DIAMICRON [Concomitant]
     Indication: DIABETES MELLITUS
     Route: 048
     Dates: start: 19940101
  8. KREDEX [Concomitant]
     Indication: LEFT VENTRICULAR DYSFUNCTION
     Route: 048
     Dates: start: 20070101
  9. LOORTAN [Concomitant]
     Indication: LEFT VENTRICULAR DYSFUNCTION
     Route: 048
     Dates: start: 20070101
  10. METFORMAX [Concomitant]
     Indication: DIABETES MELLITUS
     Route: 048
     Dates: start: 20091201
  11. METFORMAX [Concomitant]
     Route: 048
     Dates: start: 20010101, end: 20091201
  12. SYMBICORT FORTE [Concomitant]
     Indication: DYSPNOEA
     Dosage: 320/90
     Route: 048
     Dates: start: 20090603
  13. SYMBICORT FORTE [Concomitant]
  14. CLEXANE [Concomitant]
     Indication: THROMBOSIS PROPHYLAXIS
     Route: 048
     Dates: start: 20090723
  15. R-CALM [Concomitant]
     Route: 048
     Dates: start: 20090806
  16. DAFALGAN [Concomitant]
     Indication: PAIN
     Route: 048
     Dates: start: 20090820
  17. ARANESP [Concomitant]
     Indication: ANAEMIA
     Route: 058
     Dates: start: 20091001
  18. ZOMETA [Concomitant]
     Indication: PROPHYLAXIS
     Route: 051
     Dates: start: 20100114, end: 20100114
  19. ZOMETA [Concomitant]
     Route: 051
     Dates: start: 20091217, end: 20091217
  20. LAXIDO [Concomitant]
     Indication: CONSTIPATION
     Route: 048
     Dates: start: 20091204, end: 20091201
  21. STILNOCT [Concomitant]
     Indication: INSOMNIA
     Route: 048
     Dates: start: 20100105
  22. FLU VACCINE [Concomitant]
     Indication: PROPHYLAXIS
     Dosage: 1 UNIT
     Route: 030
     Dates: start: 20091027, end: 20091027
  23. MEXICAN FLU VACCINE [Concomitant]
     Indication: PROPHYLAXIS
     Dosage: 1 UNIT
     Route: 030
     Dates: start: 20091108, end: 20091108

REACTIONS (2)
  - INFECTIVE EXACERBATION OF CHRONIC OBSTRUCTIVE AIRWAYS DISEASE [None]
  - PNEUMONIA [None]
